FAERS Safety Report 11376044 (Version 1)
Quarter: 2015Q3

REPORT INFORMATION
  Report Type: Spontaneous
  Country: US (occurrence: US)
  Receive Date: 20150813
  Receipt Date: 20150813
  Transmission Date: 20151125
  Serious: Yes (Other)
  Sender: FDA-Public Use
  Company Number: US-TEVA-585333USA

PATIENT
  Sex: Female

DRUGS (2)
  1. COPAXONE [Suspect]
     Active Substance: GLATIRAMER ACETATE
     Indication: MULTIPLE SCLEROSIS
     Route: 065
     Dates: start: 200612, end: 2014
  2. COPAXONE [Suspect]
     Active Substance: GLATIRAMER ACETATE
     Dates: start: 2014

REACTIONS (4)
  - Central nervous system lesion [Unknown]
  - Multiple sclerosis relapse [Unknown]
  - Progressive multifocal leukoencephalopathy [Unknown]
  - Hepatic failure [Unknown]

NARRATIVE: CASE EVENT DATE: 2006
